FAERS Safety Report 5425376-8 (Version None)
Quarter: 2007Q3

REPORT INFORMATION
  Report Type: 
  Country: None (occurrence: None)
  Receive Date: 20070824
  Receipt Date: 20070817
  Transmission Date: 20080115
  Serious: Yes (Other)
  Sender: FDA-Public Use
  Company Number: SE-ABBOTT-06P-150-0338698-00

PATIENT
  Sex: Female

DRUGS (2)
  1. HUMIRA [Suspect]
     Indication: RHEUMATOID ARTHRITIS
     Dates: start: 20050510, end: 20050614
  2. HUMIRA [Suspect]
     Dates: start: 20040426, end: 20051025

REACTIONS (2)
  - ABORTION [None]
  - DRUG EFFECT DECREASED [None]
